FAERS Safety Report 6103685-7 (Version None)
Quarter: 2009Q1

REPORT INFORMATION
  Report Type: 
  Country: None (occurrence: None)
  Receive Date: 20090305
  Receipt Date: 20090226
  Transmission Date: 20090719
  Serious: Yes (Life-Threatening, Hospitalization)
  Sender: FDA-Public Use
  Company Number: CH-AVENTIS-200910980EU

PATIENT
  Age: 77 Year
  Sex: Female

DRUGS (2)
  1. CLEXANE [Suspect]
     Indication: VENOUS THROMBOSIS
     Dosage: DOSE: UNK
     Route: 058
     Dates: start: 20081214, end: 20081230
  2. PHENYTOIN-GEROT [Suspect]
     Indication: MENINGIOMA
     Dosage: DOSE: UNK
     Route: 048
     Dates: start: 20081125, end: 20081230

REACTIONS (1)
  - TOXIC EPIDERMAL NECROLYSIS [None]
